FAERS Safety Report 4741519-3 (Version None)
Quarter: 2005Q3

REPORT INFORMATION
  Report Type: 
  Country: None (occurrence: None)
  Receive Date: 20050808
  Receipt Date: 20050523
  Transmission Date: 20060218
  Serious: Yes (Hospitalization)
  Sender: FDA-Public Use
  Company Number: 2005FR-00203

PATIENT
  Age: 66 Year
  Sex: Male

DRUGS (4)
  1. ASPIRIN [Suspect]
     Route: 048
     Dates: end: 20050222
  2. BENDROFLUAZIDE [Concomitant]
  3. DOXAZOSIN [Concomitant]
  4. METFORMIN [Concomitant]

REACTIONS (1)
  - GASTRIC ULCER HAEMORRHAGE [None]
